FAERS Safety Report 10078952 (Version 1)
Quarter: 2014Q2

REPORT INFORMATION
  Report Type: Spontaneous
  Country: GB (occurrence: GB)
  Receive Date: 20140415
  Receipt Date: 20140415
  Transmission Date: 20141212
  Serious: Yes (Other)
  Sender: FDA-Public Use
  Company Number: GB-009507513-1404GBR008548

PATIENT
  Age: 28 Year
  Sex: Female
  Weight: 71 kg

DRUGS (6)
  1. NEXPLANON [Suspect]
     Indication: CONTRACEPTION
     Dosage: INSERTED INTO LEFT ARM
     Route: 058
     Dates: start: 20120309
  2. DESOGESTREL [Concomitant]
  3. DOXYCYCLINE [Concomitant]
  4. NITROFURANTOIN [Concomitant]
  5. TRIMETHOPRIM [Concomitant]
  6. VENLAFAXINE HYDROCHLORIDE [Concomitant]

REACTIONS (3)
  - Menstruation irregular [Unknown]
  - Device breakage [Unknown]
  - Device difficult to use [Unknown]
